FAERS Safety Report 5828072-8 (Version None)
Quarter: 2008Q3

REPORT INFORMATION
  Report Type: 
  Country: None (occurrence: None)
  Receive Date: 20080730
  Receipt Date: 20070619
  Transmission Date: 20090109
  Serious: No
  Sender: FDA-Public Use
  Company Number: A0658249A

PATIENT
  Age: 2 Month
  Sex: Male

DRUGS (2)
  1. ZANTAC [Suspect]
     Route: 048
     Dates: start: 20070603
  2. VITAMIN TAB [Concomitant]

REACTIONS (5)
  - CRYING [None]
  - DRUG INEFFECTIVE [None]
  - IRRITABILITY [None]
  - PAIN [None]
  - RASH [None]
